FAERS Safety Report 11528976 (Version 5)
Quarter: 2016Q1

REPORT INFORMATION
  Report Type: Report from Study
  Country: US (occurrence: US)
  Receive Date: 20150921
  Receipt Date: 20160226
  Transmission Date: 20160525
  Serious: Yes (Hospitalization, Other)
  Sender: FDA-Public Use
  Company Number: US-AMGEN-USASP2015095505

PATIENT
  Age: 64 Year
  Sex: Female

DRUGS (4)
  1. METHOTREXATE [Concomitant]
     Active Substance: METHOTREXATE
     Dosage: 2.5 MG (6 TABLETS WEEKLY)
  2. ENBREL [Suspect]
     Active Substance: ETANERCEPT
     Indication: RHEUMATOID ARTHRITIS
     Dosage: 50 MG, QWK
     Route: 065
  3. FOLIC ACID. [Concomitant]
     Active Substance: FOLIC ACID
     Dosage: 1 MG (5 TABLETS WEEKLY)
  4. ENBREL [Suspect]
     Active Substance: ETANERCEPT
     Dosage: UNK
     Route: 065

REACTIONS (17)
  - Injection site haemorrhage [Unknown]
  - Fall [Unknown]
  - Drug effect delayed [Unknown]
  - Wound haemorrhage [Unknown]
  - Rheumatoid arthritis [Unknown]
  - Injection site pain [Unknown]
  - Extra dose administered [Unknown]
  - Corrective lens user [Unknown]
  - Inappropriate schedule of drug administration [Recovered/Resolved]
  - Wrong technique in product usage process [Unknown]
  - Device failure [Unknown]
  - Cellulitis [Unknown]
  - Drug effect decreased [Unknown]
  - Muscular weakness [Unknown]
  - Injection site bruising [Unknown]
  - Malaise [Unknown]
  - Device issue [Unknown]

NARRATIVE: CASE EVENT DATE: 2015
